FAERS Safety Report 7231351-3 (Version None)
Quarter: 2011Q1

REPORT INFORMATION
  Report Type: 
  Country: None (occurrence: None)
  Receive Date: 20110118
  Receipt Date: 20110107
  Transmission Date: 20110831
  Serious: Yes (Death)
  Sender: FDA-Public Use
  Company Number: US-MERCK-1101USA00942

PATIENT
  Age: 31 Year
  Sex: Male

DRUGS (2)
  1. COCAINE [Suspect]
     Route: 065
  2. TIAMATE [Suspect]
     Route: 048

REACTIONS (1)
  - INTENTIONAL OVERDOSE [None]
